FAERS Safety Report 7713518-0 (Version None)
Quarter: 2011Q3

REPORT INFORMATION
  Report Type: 
  Country: None (occurrence: None)
  Receive Date: 20110826
  Receipt Date: 20110819
  Transmission Date: 20111222
  Serious: Yes (Other)
  Sender: FDA-Public Use
  Company Number: BR-PFIZER INC-2011171047

PATIENT
  Age: 52 Year
  Sex: Female
  Weight: 90 kg

DRUGS (8)
  1. POTASSIUM CHLORIDE [Concomitant]
     Indication: HYPERTENSION
     Dosage: UNK, 1X/DAY
  2. LEVOTHYROXINE SODIUM [Concomitant]
     Indication: HYPOTHYROIDISM
     Dosage: 150 UG, 1X/DAY
     Dates: start: 20090101
  3. ASPIRIN [Concomitant]
     Indication: PROPHYLAXIS
     Dosage: UNK, ONE TABLET ONCE DAILY
     Route: 048
  4. ALENIA [Concomitant]
     Indication: EMPHYSEMA
     Dosage: UNK, TWICE DAILY
     Dates: start: 20110101
  5. VARENICLINE TARTRATE [Suspect]
     Indication: TOBACCO USER
     Dosage: UNK
     Route: 048
     Dates: start: 20110727
  6. VARENICLINE TARTRATE [Suspect]
     Dosage: 1 MG, 2X/DAY
     Route: 048
     Dates: end: 20110816
  7. PROPRANOLOL [Concomitant]
     Indication: HYPERTENSION
     Dosage: 40 MG, 2X/DAY
  8. HYDROCHLOROTHIAZIDE [Concomitant]
     Indication: DIURETIC THERAPY
     Dosage: 25 MG, 1X/DAY

REACTIONS (1)
  - BRADYPHRENIA [None]
